FAERS Safety Report 25935250 (Version 5)
Quarter: 2025Q4

REPORT INFORMATION
  Report Type: Report from Study
  Country: US (occurrence: US)
  Receive Date: 20251017
  Receipt Date: 20251218
  Transmission Date: 20260117
  Serious: No
  Sender: PFIZER
  Company Number: US-PFIZER INC-202500203652

PATIENT
  Age: 12 Year
  Sex: Male
  Weight: 54.422 kg

DRUGS (2)
  1. GENOTROPIN [Suspect]
     Active Substance: SOMATROPIN
     Indication: Growth hormone deficiency
     Dosage: 2.4MG INJECTION EVERY DAY
     Route: 058
     Dates: start: 2025
  2. SODIUM CITRATE AND CITRIC ACID [Concomitant]
     Active Substance: CITRIC ACID MONOHYDRATE\SODIUM CITRATE
     Indication: Primary hyperoxaluria
     Dosage: 20 ML, TWICE A DAY (SOLUTION)
     Route: 048

REACTIONS (2)
  - Drug dose omission by device [Unknown]
  - Device issue [Recovered/Resolved]
